FAERS Safety Report 5056286-6 (Version None)
Quarter: 2006Q3

REPORT INFORMATION
  Report Type: 
  Country: None (occurrence: None)
  Receive Date: 20060717
  Receipt Date: 20060704
  Transmission Date: 20061208
  Serious: Yes (Hospitalization)
  Sender: FDA-Public Use
  Company Number: 2005099539

PATIENT
  Age: 49 Year
  Sex: Female

DRUGS (10)
  1. SOLU-MEDROL [Suspect]
     Indication: DRUG USE FOR UNKNOWN INDICATION
     Dosage: INTRAVENOUS
     Route: 042
     Dates: start: 20050310, end: 20050426
  2. IFOSFAMIDE [Concomitant]
  3. MOVICOL (MACROGOL, POTASSIUM CHLORIDE, SODIUM BICARBONATE, SODIUM CHLO [Concomitant]
  4. MESNA [Concomitant]
  5. ZOFRAN [Concomitant]
  6. DOXORUBICIN HCL [Concomitant]
  7. IFOSFAMIDE [Concomitant]
  8. SODIUM BICARBONATE IN PLASTIC CONTAINER [Concomitant]
  9. ONDANSETRON [Concomitant]
  10. ALL OTHER THERAPEUTIC PRODUCTS (ALL OTHER THERAPEUTIC PRODUCTS) [Concomitant]

REACTIONS (8)
  - AGITATION [None]
  - ANXIETY [None]
  - DEPRESSION [None]
  - INCOHERENT [None]
  - RESTLESSNESS [None]
  - TRANCE [None]
  - TREMOR [None]
  - VOMITING [None]
